FAERS Safety Report 9354132 (Version 1)
Quarter: 2013Q2

REPORT INFORMATION
  Report Type: Spontaneous
  Country: US (occurrence: US)
  Receive Date: 20130618
  Receipt Date: 20130618
  Transmission Date: 20140414
  Serious: Yes (Other)
  Sender: FDA-Public Use
  Company Number: US-GLAXOSMITHKLINE-A1026941A

PATIENT
  Age: 40 Year
  Sex: Female

DRUGS (15)
  1. ADVAIR [Suspect]
     Indication: ASTHMA
     Dosage: 1PUFF TWICE PER DAY
     Route: 055
  2. OMEPRAZOLE [Concomitant]
  3. CARVEDILOL [Concomitant]
  4. ESTRADIOL [Concomitant]
  5. VENTOLIN HFA [Concomitant]
  6. GABAPENTIN [Concomitant]
  7. HYDROCODONE/APAP [Concomitant]
  8. ALPRAZOLAM [Concomitant]
  9. FLUTICASONE [Concomitant]
  10. HYDROXYZINE HCL [Concomitant]
  11. CYCLOBENZAPRINE [Concomitant]
  12. DICLOFENAC [Concomitant]
  13. HYDROCHLOROTHIAZIDE [Concomitant]
  14. VOLTAREN [Concomitant]
  15. CLOBETASOL PROPIONATE [Concomitant]

REACTIONS (6)
  - Hip fracture [Unknown]
  - Clavicle fracture [Unknown]
  - Osteoporosis [Unknown]
  - Fall [Unknown]
  - Pelvic fracture [Unknown]
  - Foot fracture [Not Recovered/Not Resolved]
